FAERS Safety Report 25211717 (Version 1)
Quarter: 2025Q2

REPORT INFORMATION
  Report Type: Spontaneous
  Country: US (occurrence: US)
  Receive Date: 20250418
  Receipt Date: 20250418
  Transmission Date: 20250717
  Serious: No
  Sender: ASTELLAS
  Company Number: US-ASTELLAS-2025-AER-020846

PATIENT
  Sex: Female

DRUGS (4)
  1. LEXISCAN [Suspect]
     Active Substance: REGADENOSON
     Indication: Product used for unknown indication
     Route: 042
     Dates: start: 20250411, end: 20250411
  2. LEXISCAN [Suspect]
     Active Substance: REGADENOSON
  3. LEXISCAN [Suspect]
     Active Substance: REGADENOSON
  4. LEXISCAN [Suspect]
     Active Substance: REGADENOSON

REACTIONS (1)
  - Injection site extravasation [Unknown]

NARRATIVE: CASE EVENT DATE: 20250411
